FAERS Safety Report 21938513 (Version 3)
Quarter: 2023Q1

REPORT INFORMATION
  Report Type: Spontaneous
  Country: US (occurrence: US)
  Receive Date: 20230201
  Receipt Date: 20230217
  Transmission Date: 20230417
  Serious: Yes (Hospitalization)
  Sender: FDA-Public Use
  Company Number: US-LUNDBECK-DKLU3045046

PATIENT
  Age: 6 Year
  Sex: Male

DRUGS (15)
  1. SABRIL [Suspect]
     Active Substance: VIGABATRIN
     Indication: Infantile spasms
     Route: 048
     Dates: start: 2019
  2. DEPAKOTE [Concomitant]
     Active Substance: DIVALPROEX SODIUM
     Indication: Seizure
     Route: 065
     Dates: start: 2019
  3. LEVOCARNITINE [Concomitant]
     Active Substance: LEVOCARNITINE
     Indication: Product used for unknown indication
     Route: 048
  4. ALBUTEROL [Concomitant]
     Active Substance: ALBUTEROL
     Indication: Respiratory distress
     Route: 055
  5. ALBUTEROL [Concomitant]
     Active Substance: ALBUTEROL
     Indication: Cough
  6. IPRATROPIUM [Concomitant]
     Active Substance: IPRATROPIUM
     Indication: Product used for unknown indication
     Route: 002
  7. IPRATROPIUM [Concomitant]
     Active Substance: IPRATROPIUM
     Route: 045
  8. LACTOBACILLUS ACIDOPHILUS [Concomitant]
     Active Substance: LACTOBACILLUS ACIDOPHILUS
     Indication: Product used for unknown indication
     Route: 048
  9. MELATONIN [Concomitant]
     Active Substance: MELATONIN
     Indication: Product used for unknown indication
     Route: 048
  10. MULTIVITAMIN WITH IRON AND MINERALS [Concomitant]
     Indication: Product used for unknown indication
     Route: 048
  11. POLYETHYLENE GLYCOL [Concomitant]
     Active Substance: POLYETHYLENE GLYCOL
     Indication: Product used for unknown indication
     Route: 048
  12. VALPROATE [Concomitant]
     Active Substance: VALPROIC ACID
     Indication: Seizure
     Route: 048
  13. VALPROATE [Concomitant]
     Active Substance: VALPROIC ACID
     Route: 048
  14. GLYCOPYRROLATE [Concomitant]
     Active Substance: GLYCOPYRROLATE
     Indication: Increased upper airway secretion
     Route: 048
  15. BETHKIS [Concomitant]
     Active Substance: TOBRAMYCIN
     Indication: Product used for unknown indication
     Route: 055

REACTIONS (7)
  - Pneumonia pseudomonal [Recovered/Resolved]
  - Seizure [Recovered/Resolved]
  - Acute respiratory failure [Recovered/Resolved]
  - Rhinovirus infection [Recovered/Resolved]
  - Septic shock [Recovered/Resolved]
  - Deep vein thrombosis [Recovered/Resolved]
  - Foreign body reaction [Recovered/Resolved]

NARRATIVE: CASE EVENT DATE: 20211130
